FAERS Safety Report 8416160-1 (Version None)
Quarter: 2012Q2

REPORT INFORMATION
  Report Type: 
  Country: None (occurrence: None)
  Receive Date: 20120530
  Receipt Date: 20120518
  Transmission Date: 20120825
  Serious: Yes (Hospitalization)
  Sender: FDA-Public Use
  Company Number: 2012CP000064

PATIENT
  Age: 86 Year
  Sex: Female

DRUGS (1)
  1. ACETAMINOPHEN [Suspect]
     Indication: PAIN
     Dosage: 1 DOSAGE FORM;IV
     Route: 042
     Dates: start: 20120506, end: 20120506

REACTIONS (1)
  - HEPATITIS TOXIC [None]
